FAERS Safety Report 5902409-3 (Version None)
Quarter: 2008Q3

REPORT INFORMATION
  Report Type: 
  Country: None (occurrence: None)
  Receive Date: 20080919
  Receipt Date: 20080716
  Transmission Date: 20090109
  Serious: No
  Sender: FDA-Public Use
  Company Number: US-WYE-H05157708

PATIENT
  Age: 39 Year
  Sex: Female
  Weight: 75.82 kg

DRUGS (4)
  1. PRISTIQ [Suspect]
     Indication: DEPRESSION
     Dosage: 50 MG 1X PER 1 DAY, ORAL
     Route: 048
     Dates: start: 20080710
  2. ETHINYL ESTRADIOL TAB [Concomitant]
  3. MIRALAX [Concomitant]
  4. DROSPIRENONE (DROSPIRENONE) [Concomitant]

REACTIONS (5)
  - FATIGUE [None]
  - NAUSEA [None]
  - OROPHARYNGEAL PAIN [None]
  - POSTNASAL DRIP [None]
  - VISION BLURRED [None]
